FAERS Safety Report 11975457 (Version 5)
Quarter: 2016Q3

REPORT INFORMATION
  Report Type: Report from Study
  Country: US (occurrence: US)
  Receive Date: 20160128
  Receipt Date: 20160801
  Transmission Date: 20161109
  Serious: Yes (Hospitalization)
  Sender: FDA-Public Use
  Company Number: US-BIOGEN-2016BI00174821

PATIENT
  Age: 44 Year
  Sex: Female

DRUGS (8)
  1. PLEGRIDY [Suspect]
     Active Substance: PEGINTERFERON BETA-1A
     Route: 058
     Dates: start: 20151228, end: 20151228
  2. CLONAZEPAM. [Concomitant]
     Active Substance: CLONAZEPAM
     Indication: PRODUCT USED FOR UNKNOWN INDICATION
     Route: 065
  3. PLEGRIDY [Suspect]
     Active Substance: PEGINTERFERON BETA-1A
     Route: 058
     Dates: start: 20141214, end: 20151228
  4. PLEGRIDY [Suspect]
     Active Substance: PEGINTERFERON BETA-1A
     Route: 065
     Dates: start: 20160111
  5. VITAMIN D [Concomitant]
     Active Substance: CHOLECALCIFEROL
     Indication: IRON DEFICIENCY
     Route: 065
  6. AMBIEN [Concomitant]
     Active Substance: ZOLPIDEM TARTRATE
     Indication: PRODUCT USED FOR UNKNOWN INDICATION
     Route: 065
  7. PLEGRIDY [Suspect]
     Active Substance: PEGINTERFERON BETA-1A
     Indication: MULTIPLE SCLEROSIS
     Route: 058
     Dates: start: 20151214, end: 20151214
  8. PREDNISONE. [Concomitant]
     Active Substance: PREDNISONE
     Indication: PRODUCT USED FOR UNKNOWN INDICATION
     Route: 065

REACTIONS (49)
  - Injection site pain [Recovered/Resolved]
  - Burning sensation [Recovered/Resolved]
  - Injection site bruising [Recovered/Resolved]
  - Injection site pruritus [Not Recovered/Not Resolved]
  - Procedural anxiety [Not Recovered/Not Resolved]
  - Skin exfoliation [Unknown]
  - Injection site erythema [Unknown]
  - Urticaria [Recovered/Resolved]
  - Injection site reaction [Recovered/Resolved]
  - Anxiety [Not Recovered/Not Resolved]
  - Eye pruritus [Recovered/Resolved]
  - Contusion [Unknown]
  - Musculoskeletal pain [Recovered/Resolved]
  - Multiple sclerosis relapse [Not Recovered/Not Resolved]
  - Hypersensitivity [Recovered/Resolved]
  - Ocular hyperaemia [Recovered/Resolved]
  - Motor dysfunction [Not Recovered/Not Resolved]
  - General symptom [Recovered/Resolved]
  - Eye swelling [Recovered/Resolved]
  - Migraine [Recovered/Resolved]
  - Rash papular [Not Recovered/Not Resolved]
  - Hypoaesthesia [Not Recovered/Not Resolved]
  - Dry skin [Recovered/Resolved]
  - Myalgia [Recovered/Resolved]
  - Pyrexia [Recovered/Resolved]
  - Vomiting [Recovered/Resolved]
  - Musculoskeletal disorder [Not Recovered/Not Resolved]
  - Insomnia [Not Recovered/Not Resolved]
  - Peripheral swelling [Not Recovered/Not Resolved]
  - Paraesthesia [Not Recovered/Not Resolved]
  - Swelling face [Recovered/Resolved]
  - Influenza like illness [Recovered/Resolved]
  - Gait disturbance [Recovered/Resolved]
  - Lacrimation increased [Recovered/Resolved]
  - Injection site swelling [Recovered/Resolved with Sequelae]
  - Pain [Recovered/Resolved]
  - Fatigue [Recovered/Resolved]
  - Eye pain [Not Recovered/Not Resolved]
  - Pain in extremity [Recovered/Resolved]
  - Photophobia [Recovered/Resolved]
  - Back pain [Not Recovered/Not Resolved]
  - Neurodegenerative disorder [Not Recovered/Not Resolved]
  - Injection site rash [Not Recovered/Not Resolved]
  - Malaise [Not Recovered/Not Resolved]
  - Muscle spasms [Not Recovered/Not Resolved]
  - Body temperature increased [Not Recovered/Not Resolved]
  - Eye disorder [Recovered/Resolved]
  - Central nervous system lesion [Not Recovered/Not Resolved]
  - Skin mass [Recovered/Resolved]

NARRATIVE: CASE EVENT DATE: 201512
